FAERS Safety Report 12473041 (Version 2)
Quarter: 2016Q4

REPORT INFORMATION
  Report Type: Spontaneous
  Country: US (occurrence: US)
  Receive Date: 20160616
  Receipt Date: 20161108
  Transmission Date: 20170207
  Serious: Yes (Other)
  Sender: FDA-Public Use
  Company Number: US-BAYER-2016-118521

PATIENT
  Age: 19 Year
  Sex: Female

DRUGS (7)
  1. LYSTEDA [Concomitant]
     Active Substance: TRANEXAMIC ACID
     Dosage: 2 DF, TID
     Route: 048
  2. LYSTEDA [Concomitant]
     Active Substance: TRANEXAMIC ACID
     Dosage: 2 DF, TID
     Route: 048
  3. FERROUS SULFATE. [Concomitant]
     Active Substance: FERROUS SULFATE
     Dosage: 1 DF, TID
     Route: 048
  4. MEDROXYPROGESTERON [Concomitant]
     Dosage: UNK UNK, QD
     Route: 048
  5. LYSTEDA [Concomitant]
     Active Substance: TRANEXAMIC ACID
     Dosage: 2 DF, TID
     Route: 048
  6. LYSTEDA [Concomitant]
     Active Substance: TRANEXAMIC ACID
     Dosage: 2 DF, TID
     Route: 048
  7. MIRENA [Suspect]
     Active Substance: LEVONORGESTREL
     Indication: CONTRACEPTION
     Dosage: 20 MCG/24HR, CONT
     Route: 015
     Dates: start: 20151124, end: 20160614

REACTIONS (4)
  - Genital haemorrhage [None]
  - Abdominal pain lower [None]
  - Menstrual disorder [None]
  - Device dislocation [None]

NARRATIVE: CASE EVENT DATE: 201511
